FAERS Safety Report 9249515 (Version 3)
Quarter: 2013Q3

REPORT INFORMATION
  Report Type: Report from Study
  Country: US (occurrence: US)
  Receive Date: 20130423
  Receipt Date: 20130802
  Transmission Date: 20140515
  Serious: Yes (Death, Hospitalization)
  Sender: FDA-Public Use
  Company Number: US-ABBOTT-13P-163-1079674-00

PATIENT
  Age: 79 Year
  Sex: Male
  Weight: 85.81 kg

DRUGS (9)
  1. HUMIRA [Suspect]
     Indication: RHEUMATOID ARTHRITIS
     Route: 058
     Dates: start: 20100916, end: 201304
  2. DEMADEX [Concomitant]
     Indication: FLUID RETENTION
  3. POTASSIUM [Concomitant]
     Indication: HYPOKALAEMIA
  4. FOLIC ACID [Concomitant]
     Indication: VITAMIN SUPPLEMENTATION
  5. METHOTREXATE [Concomitant]
     Indication: RHEUMATOID ARTHRITIS
  6. CALCIUM [Concomitant]
     Indication: MINERAL SUPPLEMENTATION
  7. COUMADIN [Concomitant]
     Indication: PRODUCT USED FOR UNKNOWN INDICATION
  8. ZOCOR [Concomitant]
     Indication: BLOOD CHOLESTEROL INCREASED
  9. TYLENOL EXTRA STRENGTH [Concomitant]
     Indication: PAIN

REACTIONS (3)
  - Colon cancer [Fatal]
  - Oedema peripheral [Not Recovered/Not Resolved]
  - Liver function test abnormal [Unknown]
